FAERS Safety Report 4936604-7 (Version None)
Quarter: 2006Q1

REPORT INFORMATION
  Report Type: 
  Country: None (occurrence: None)
  Receive Date: 20060303
  Receipt Date: 20060223
  Transmission Date: 20060701
  Serious: Yes (Other)
  Sender: FDA-Public Use
  Company Number: USA-2006-0023450

PATIENT
  Sex: Female
  Weight: 43.5 kg

DRUGS (2)
  1. OXYCONTIN [Suspect]
     Indication: METASTATIC PAIN
     Dosage: 20 MG, BID
  2. OXYCODONE HCL [Concomitant]

REACTIONS (1)
  - METASTASES TO MOUTH [None]
